FAERS Safety Report 8325781 (Version 9)
Quarter: 2013Q4

REPORT INFORMATION
  Report Type: Spontaneous
  Country: None (occurrence: None)
  Receive Date: 20111228
  Receipt Date: 20131231
  Transmission Date: 20140711
  Serious: Yes (Life-Threatening, Hospitalization, Other)
  Sender: FDA-Public Use
  Company Number: AUR-APL-2011-06261

PATIENT
  Age: 54 Year
  Sex: Male

DRUGS (27)
  1. METFORMIN HYDROCHLORIDE [Suspect]
     Indication: DIABETES MELLITUS MANAGEMENT
     Dosage: ORAL
     Route: 048
     Dates: start: 2011, end: 20111209
  2. RAMIPRIL [Suspect]
     Indication: HYPERTENSION
     Dosage: ORAL
     Route: 048
     Dates: start: 2011
  3. ASA (ACETYLSALICYLIC ACID) [Concomitant]
  4. ATROVASTATIN (ATROVASTATIN) [Concomitant]
  5. BISOPROLOL FUMARATE [Concomitant]
  6. FUROSEMIDE (FUROSEMIDE) [Concomitant]
  7. GTN (GLYCERYL TRINITRATE) [Concomitant]
  8. HEPARIN [Concomitant]
  9. SENNA ALEXANDRINA (SENNA ALEXANDRINA) [Concomitant]
  10. LACTULOSE (LACTULOSE) [Concomitant]
  11. SODIUM CHLORIDE (SODIUM CHLORIDE) [Concomitant]
  12. HYDROCORTISONE (HYDROCORTISONE) [Concomitant]
  13. CHLORHEXIDINE (CHLORHEXIDINE) [Concomitant]
  14. PARACETAMOL (PARACETAMOL) [Concomitant]
  15. LITHIUM (LITHIUM) [Concomitant]
  16. PROPOFOL (PROPOFOL) [Concomitant]
  17. ALFENTANIL (ALFENTANIL) [Concomitant]
  18. INSULIN HUMAN (INSULIN HUMAN) [Concomitant]
  19. METOCLOPRAMIDE (METOCLOPRAMIDE) [Concomitant]
  20. OCTENIDINE (OCTENIDINE) [Concomitant]
  21. MUPIROCIN (MUPIROCIN) [Concomitant]
  22. NOREPINEPHRINE (NOREPINEPHRINE) [Concomitant]
  23. RANITIDINE (RANITIDINE) [Concomitant]
  24. METRONIDAZOLE (METRONIDAZOLE) [Concomitant]
  25. MEROPENEM (MEROPENEM) [Concomitant]
  26. HALOPERIDOL (HALOPERIDOL) (HALOPERIDOL) [Concomitant]
  27. ENOXAPARIN (ENOXAPARIN) [Concomitant]

REACTIONS (11)
  - Renal failure acute [None]
  - Fall [None]
  - Hypothermia [None]
  - Hypoglycaemia [None]
  - Sepsis [None]
  - Platelet count increased [None]
  - Blood bilirubin increased [None]
  - Amylase increased [None]
  - Toxicity to various agents [None]
  - Lactic acidosis [None]
  - Activated partial thromboplastin time prolonged [None]
